FAERS Safety Report 8094833-0 (Version None)
Quarter: 2012Q1

REPORT INFORMATION
  Report Type: 
  Country: None (occurrence: None)
  Receive Date: 20120129
  Receipt Date: 20111209
  Transmission Date: 20120608
  Serious: No
  Sender: FDA-Public Use
  Company Number: US-ABBOTT-11P-163-0882633-00

PATIENT
  Age: 27 Year
  Sex: Female

DRUGS (4)
  1. MULTI-VITAMIN [Concomitant]
     Indication: PRODUCT USED FOR UNKNOWN INDICATION
  2. ALIGN PROBIOTIC [Concomitant]
     Indication: CROHN'S DISEASE
  3. LOMOTIL [Concomitant]
     Indication: DIARRHOEA
  4. HUMIRA [Suspect]
     Indication: CROHN'S DISEASE
     Dates: start: 20090901

REACTIONS (4)
  - INJECTION SITE PAIN [None]
  - FISTULA [None]
  - CROHN'S DISEASE [None]
  - PAIN [None]
